FAERS Safety Report 21853805 (Version 1)
Quarter: 2023Q1

REPORT INFORMATION
  Report Type: Report from Study
  Country: US (occurrence: US)
  Receive Date: 20230112
  Receipt Date: 20230112
  Transmission Date: 20230417
  Serious: Yes (Other)
  Sender: FDA-Public Use
  Company Number: US-ABBVIE-4266153

PATIENT
  Age: 57 Year
  Sex: Female

DRUGS (1)
  1. HUMIRA [Suspect]
     Active Substance: ADALIMUMAB
     Indication: Product used for unknown indication
     Route: 058
     Dates: start: 20220218

REACTIONS (5)
  - Toe amputation [Unknown]
  - HLA-B*27 assay [Unknown]
  - Fracture [Recovering/Resolving]
  - Osteoarthritis [Unknown]
  - Tendon disorder [Recovering/Resolving]

NARRATIVE: CASE EVENT DATE: 20221001
